FAERS Safety Report 16566736 (Version 1)
Quarter: 2019Q3

REPORT INFORMATION
  Report Type: Spontaneous
  Country: SK (occurrence: SK)
  Receive Date: 20190712
  Receipt Date: 20190712
  Transmission Date: 20191004
  Serious: Yes (Death)
  Sender: FDA-Public Use
  Company Number: SK-AMGEN-SVKSP2019108155

PATIENT
  Age: 44 Year
  Sex: Male

DRUGS (2)
  1. TEMSIROLIMUS. [Suspect]
     Active Substance: TEMSIROLIMUS
     Indication: METASTATIC RENAL CELL CARCINOMA
     Dosage: 25 MILLIGRAM (6TH LINE TREATMENT FOR 7 DAYS)
     Route: 042
     Dates: start: 201506
  2. XGEVA [Suspect]
     Active Substance: DENOSUMAB
     Indication: METASTATIC RENAL CELL CARCINOMA
     Dosage: UNK (6TH LINE TREATMENT FOR 28DAYS)
     Route: 065

REACTIONS (1)
  - Neoplasm progression [Fatal]
